FAERS Safety Report 5479654-7 (Version None)
Quarter: 2007Q4

REPORT INFORMATION
  Report Type: 
  Country: None (occurrence: None)
  Receive Date: 20071008
  Receipt Date: 20071001
  Transmission Date: 20080405
  Serious: Yes (Life-Threatening)
  Sender: FDA-Public Use
  Company Number: B0468669A

PATIENT
  Sex: Female

DRUGS (7)
  1. SERETIDE [Suspect]
     Indication: DRUG USE FOR UNKNOWN INDICATION
     Route: 055
     Dates: start: 20060101, end: 20070101
  2. SYMBICORT [Concomitant]
     Indication: DRUG USE FOR UNKNOWN INDICATION
     Route: 065
  3. CORTISONE ACETATE [Concomitant]
     Indication: DRUG USE FOR UNKNOWN INDICATION
     Route: 065
  4. SPIRIVA [Concomitant]
     Route: 055
     Dates: start: 20060101
  5. COMBIVENT [Concomitant]
     Route: 055
     Dates: start: 20060101
  6. ACETAMINOPHEN W/ CODEINE [Concomitant]
  7. IBUPROFEN [Concomitant]

REACTIONS (7)
  - ANXIETY [None]
  - APTYALISM [None]
  - DYSPHAGIA [None]
  - DYSPNOEA [None]
  - MIDDLE INSOMNIA [None]
  - THROAT LESION [None]
  - TONGUE DISORDER [None]
